FAERS Safety Report 8516992-5 (Version None)
Quarter: 2012Q3

REPORT INFORMATION
  Report Type: 
  Country: None (occurrence: None)
  Receive Date: 20120706
  Receipt Date: 20120626
  Transmission Date: 20120928
  Serious: Yes (Other)
  Sender: FDA-Public Use
  Company Number: DKLU1082764

PATIENT

DRUGS (3)
  1. ELSPAR [Suspect]
     Indication: T-CELL LYMPHOMA
  2. VINCRESTINE (VINCRISTINE) [Suspect]
     Indication: T-CELL LYMPHOMA
  3. PREDNISONE TAB [Suspect]
     Indication: T-CELL LYMPHOMA

REACTIONS (1)
  - LEUKOPENIA [None]
